FAERS Safety Report 25100564 (Version 1)
Quarter: 2025Q1

REPORT INFORMATION
  Report Type: Spontaneous
  Country: FR (occurrence: FR)
  Receive Date: 20250320
  Receipt Date: 20250320
  Transmission Date: 20250409
  Serious: Yes (Other)
  Sender: DR REDDYS
  Company Number: None

PATIENT
  Sex: Female

DRUGS (5)
  1. CYCLOPHOSPHAMIDE [Suspect]
     Active Substance: CYCLOPHOSPHAMIDE
     Indication: Anaplastic large cell lymphoma T- and null-cell types
     Dates: start: 20240423, end: 20240423
  2. RITUXIMAB [Suspect]
     Active Substance: RITUXIMAB
     Indication: Anaplastic large cell lymphoma T- and null-cell types
     Dates: start: 20240423, end: 20240423
  3. DOXORUBICIN [Suspect]
     Active Substance: DOXORUBICIN
     Indication: Anaplastic large cell lymphoma T- and null-cell types
     Dates: start: 20240423, end: 20240423
  4. VINCRISTINE [Suspect]
     Active Substance: VINCRISTINE
     Indication: Anaplastic large cell lymphoma T- and null-cell types
     Dates: start: 20240423, end: 20240423
  5. PREDNISOLONE [Suspect]
     Active Substance: PREDNISOLONE
     Indication: Anaplastic large cell lymphoma T- and null-cell types
     Dosage: J1 A J5
     Dates: start: 20240423, end: 20240427

REACTIONS (1)
  - Exposure during pregnancy [Unknown]
